FAERS Safety Report 19161940 (Version 1)
Quarter: 2021Q2

REPORT INFORMATION
  Report Type: Spontaneous
  Country: US (occurrence: US)
  Receive Date: 20210421
  Receipt Date: 20210421
  Transmission Date: 20210717
  Serious: No
  Sender: FDA-Public Use
  Company Number: US-JNJFOC-20210426305

PATIENT
  Age: 13 Year
  Sex: Male
  Weight: 70.37 kg

DRUGS (4)
  1. INVEGA [Suspect]
     Active Substance: PALIPERIDONE
     Indication: PRODUCT USED FOR UNKNOWN INDICATION
     Route: 048
     Dates: start: 202007
  2. CONCERTA [Suspect]
     Active Substance: METHYLPHENIDATE HYDROCHLORIDE
     Indication: VISION BLURRED
     Route: 065
     Dates: start: 202101
  3. HPV VACCINE [Concomitant]
     Active Substance: HUMAN PAPILLOMAVIRUS QUADRIVALENT (TYPES 6, 11, 16, AND 18) VACCINE, RECOMBINANT
     Indication: PRODUCT USED FOR UNKNOWN INDICATION
  4. INVEGA [Suspect]
     Active Substance: PALIPERIDONE
     Route: 048
     Dates: start: 202101

REACTIONS (4)
  - Feeling abnormal [Unknown]
  - Treatment noncompliance [Unknown]
  - Paranoia [Unknown]
  - Loss of personal independence in daily activities [Unknown]

NARRATIVE: CASE EVENT DATE: 202101
